FAERS Safety Report 15291436 (Version 2)
Quarter: 2018Q3

REPORT INFORMATION
  Report Type: Spontaneous
  Country: US (occurrence: US)
  Receive Date: 20180817
  Receipt Date: 20180822
  Transmission Date: 20181010
  Serious: Yes (Other)
  Sender: FDA-Public Use
  Company Number: US-PFIZER INC-2018329221

PATIENT
  Sex: Female

DRUGS (3)
  1. LYRICA [Suspect]
     Active Substance: PREGABALIN
     Dosage: 125 MG, UNK
     Dates: start: 20180707
  2. LYRICA [Suspect]
     Active Substance: PREGABALIN
     Indication: RESTLESS LEGS SYNDROME
     Dosage: 150 MG, UNK
     Dates: start: 20180401, end: 20180707
  3. LYRICA [Suspect]
     Active Substance: PREGABALIN
     Dosage: 112.5 MG, UNK

REACTIONS (17)
  - Feeling abnormal [Unknown]
  - Thinking abnormal [Unknown]
  - Paralysis [Unknown]
  - Malaise [Unknown]
  - Suicidal ideation [Unknown]
  - Fear [Unknown]
  - Coordination abnormal [Unknown]
  - Emotional disorder [Unknown]
  - Tremor [Unknown]
  - Anxiety [Unknown]
  - Confusional state [Unknown]
  - Dizziness [Unknown]
  - Nausea [Unknown]
  - Vomiting [Unknown]
  - Product use in unapproved indication [Not Recovered/Not Resolved]
  - Withdrawal syndrome [Unknown]
  - Panic attack [Unknown]

NARRATIVE: CASE EVENT DATE: 20180401
